FAERS Safety Report 6647209-4 (Version None)
Quarter: 2010Q1

REPORT INFORMATION
  Report Type: 
  Country: None (occurrence: None)
  Receive Date: 20100323
  Receipt Date: 20100315
  Transmission Date: 20100710
  Serious: Yes (Hospitalization)
  Sender: FDA-Public Use
  Company Number: A0795485A

PATIENT
  Age: 58 Year
  Sex: Female

DRUGS (13)
  1. REQUIP XL [Suspect]
     Dosage: 24MG PER DAY
     Route: 048
     Dates: start: 20080101
  2. REQUIP [Concomitant]
     Dosage: 8MG THREE TIMES PER DAY
     Route: 048
     Dates: start: 20090511, end: 20090608
  3. EFFEXOR [Concomitant]
     Indication: DEPRESSION
  4. BUMETANIDE [Concomitant]
     Dosage: 2MG TWICE PER DAY
  5. SPIRONOLACTONE [Concomitant]
     Dosage: 25MG TWICE PER DAY
  6. POTASSIUM [Concomitant]
     Dosage: 10MEQ TWICE PER DAY
  7. CYANOCOBALAMIN [Concomitant]
     Route: 030
  8. UNKNOWN [Concomitant]
     Dosage: 400MG TWICE PER DAY
  9. LISINOPRIL [Concomitant]
  10. LASIX [Concomitant]
  11. K-DUR [Concomitant]
  12. VITAMIN D [Concomitant]
  13. ALKA SELTZER PLUS [Concomitant]

REACTIONS (17)
  - ABDOMINAL DISCOMFORT [None]
  - ASTHENIA [None]
  - BLOOD PRESSURE DECREASED [None]
  - CARDIAC FAILURE [None]
  - COUGH [None]
  - DIZZINESS [None]
  - FLUID OVERLOAD [None]
  - GASTRITIS [None]
  - HAEMATEMESIS [None]
  - ILL-DEFINED DISORDER [None]
  - OEDEMA PERIPHERAL [None]
  - PYREXIA [None]
  - SINUS CONGESTION [None]
  - SKIN DISORDER [None]
  - SLEEP DISORDER [None]
  - THERAPEUTIC RESPONSE UNEXPECTED [None]
  - VOMITING [None]
